FAERS Safety Report 4363954-8 (Version None)
Quarter: 2004Q2

REPORT INFORMATION
  Report Type: 
  Country: None (occurrence: None)
  Receive Date: 20040525
  Receipt Date: 20040506
  Transmission Date: 20050107
  Serious: Yes (Life-Threatening)
  Sender: FDA-Public Use
  Company Number: FR-BRISTOL-MYERS SQUIBB COMPANY-12581518

PATIENT
  Age: 80 Year
  Sex: Female

DRUGS (9)
  1. VASTEN TABS [Suspect]
     Route: 048
     Dates: start: 20040216, end: 20040405
  2. MOPRAL [Suspect]
     Route: 048
     Dates: start: 20040216, end: 20040405
  3. PLAVIX [Suspect]
     Indication: STENT PLACEMENT
     Route: 048
     Dates: start: 20040216, end: 20040405
  4. AUGMENTIN [Concomitant]
     Route: 048
     Dates: start: 20040315, end: 20040322
  5. ASPEGIC 325 [Concomitant]
     Route: 048
  6. CARDENSIEL [Concomitant]
     Route: 048
  7. UNICORDIUM [Concomitant]
     Route: 048
  8. ATARAX [Concomitant]
     Route: 048
  9. DAFALGAN CODEINE [Concomitant]
     Route: 048

REACTIONS (2)
  - BONE MARROW DEPRESSION [None]
  - NEUTROPENIA [None]
